FAERS Safety Report 6927849-5 (Version None)
Quarter: 2010Q3

REPORT INFORMATION
  Report Type: 
  Country: None (occurrence: None)
  Receive Date: 20100817
  Receipt Date: 20100805
  Transmission Date: 20110219
  Serious: Yes (Other)
  Sender: FDA-Public Use
  Company Number: JP-PFIZER INC-2010090718

PATIENT
  Age: 62 Year
  Sex: Male

DRUGS (5)
  1. LYRICA [Suspect]
     Dosage: 150 MG/DAY
     Route: 048
     Dates: start: 20100625, end: 20100701
  2. LYRICA [Suspect]
     Dosage: 300 MG/DAY
     Route: 048
     Dates: start: 20100702, end: 20100702
  3. CONIEL [Concomitant]
     Dosage: UNK
     Route: 048
     Dates: start: 20100101
  4. VALSARTAN [Concomitant]
     Dosage: UNK
     Route: 048
     Dates: start: 20100101
  5. PLAVIX [Concomitant]
     Dosage: UNK
     Route: 048
     Dates: start: 20100101

REACTIONS (2)
  - DYSPNOEA [None]
  - PALPITATIONS [None]
